FAERS Safety Report 6993186-6 (Version None)
Quarter: 2010Q3

REPORT INFORMATION
  Report Type: 
  Country: None (occurrence: None)
  Receive Date: 20100917
  Receipt Date: 20071226
  Transmission Date: 20110219
  Serious: Yes (Other)
  Sender: FDA-Public Use
  Company Number: US-ASTRAZENECA-2006UW26083

PATIENT
  Age: 53 Year
  Sex: Male
  Weight: 86.4 kg

DRUGS (14)
  1. SEROQUEL [Suspect]
     Indication: SCHIZOPHRENIA
     Route: 048
     Dates: start: 20010101
  2. SEROQUEL [Suspect]
     Indication: BIPOLAR DISORDER
     Route: 048
     Dates: start: 20010101
  3. SEROQUEL [Suspect]
     Indication: DEPRESSION
     Route: 048
     Dates: start: 20010101
  4. SEROQUEL [Suspect]
     Indication: SLEEP DISORDER
     Route: 048
     Dates: start: 20010101
  5. SEROQUEL [Suspect]
     Route: 048
     Dates: start: 20041214
  6. SEROQUEL [Suspect]
     Route: 048
     Dates: start: 20041214
  7. SEROQUEL [Suspect]
     Route: 048
     Dates: start: 20041214
  8. SEROQUEL [Suspect]
     Route: 048
     Dates: start: 20041214
  9. ZOLOFT [Concomitant]
     Dosage: 50-100 MG EVERY DAY
     Route: 048
     Dates: start: 20040101
  10. DEPAKOTE [Concomitant]
     Dates: start: 20040101
  11. LITHIUM CARBONATE [Concomitant]
     Route: 048
     Dates: start: 20050101
  12. TRAZODONE HCL [Concomitant]
     Dates: start: 20020101
  13. AMBIEN [Concomitant]
     Dates: start: 20020101
  14. EFFEXOR [Concomitant]
     Dosage: 75-150 MG
     Dates: start: 20020101

REACTIONS (4)
  - DIABETES MELLITUS [None]
  - DIABETIC KETOACIDOSIS [None]
  - TYPE 1 DIABETES MELLITUS [None]
  - TYPE 2 DIABETES MELLITUS [None]
